FAERS Safety Report 6251104-2 (Version None)
Quarter: 2009Q2

REPORT INFORMATION
  Report Type: 
  Country: None (occurrence: None)
  Receive Date: 20090630
  Receipt Date: 20090618
  Transmission Date: 20091009
  Serious: Yes (Other)
  Sender: FDA-Public Use
  Company Number: US-AMGEN-QUU352160

PATIENT
  Sex: Female

DRUGS (19)
  1. ENBREL [Suspect]
     Indication: PSORIASIS
     Dates: start: 20050929
  2. ENBREL [Suspect]
     Indication: PSORIATIC ARTHROPATHY
  3. DILANTIN [Concomitant]
  4. GEMFIBROZIL [Concomitant]
  5. METFORMIN HCL [Concomitant]
  6. SEROQUEL [Concomitant]
  7. CYMBALTA [Concomitant]
  8. NEXIUM [Concomitant]
  9. HYDROXYZINE [Concomitant]
  10. TRAMADOL HCL [Concomitant]
  11. DESONIDE [Concomitant]
  12. VALIUM [Concomitant]
     Route: 048
  13. ZETIA [Concomitant]
  14. PERCOCET [Concomitant]
  15. KADIAN [Concomitant]
  16. KADIAN [Concomitant]
  17. AMBIEN [Concomitant]
  18. CLARITIN [Concomitant]
  19. ALBUTEROL [Concomitant]
     Route: 055

REACTIONS (2)
  - BENIGN INTRACRANIAL HYPERTENSION [None]
  - HYDROCEPHALUS [None]
